FAERS Safety Report 7026753-4 (Version None)
Quarter: 2010Q4

REPORT INFORMATION
  Report Type: 
  Country: None (occurrence: None)
  Receive Date: 20101004
  Receipt Date: 20100923
  Transmission Date: 20110411
  Serious: Yes (Disabling)
  Sender: FDA-Public Use
  Company Number: US-ROCHE-719887

PATIENT
  Sex: Female
  Weight: 73.5 kg

DRUGS (11)
  1. BEVACIZUMAB [Suspect]
     Dosage: FORM, VIALS, DATE OF LAST DOSE PRIOR TO SAE: 25 JUNE 2010 TOTAL DOSE: 1099.5MG
     Route: 042
     Dates: start: 20100218, end: 20100806
  2. TRASTUZUMAB [Suspect]
     Dosage: AS PER PROTOCOL: LOADING DOSE: 8MG/KG, TOTAL DOSE: 586 MG.ONLY ON DAY 1 OF CYCLE 1,FORM:VIALS
     Route: 042
     Dates: start: 20100218
  3. TRASTUZUMAB [Suspect]
     Dosage: MAINTAINING DOSE:FORM:VIALS,TOTAL DOSE:439 MG,LAST DOSE PRIOR TO SAE: 25 JUNE 2010.
     Route: 042
     Dates: start: 20100311, end: 20100806
  4. CARBOPLATIN [Suspect]
     Dosage: FORM: VIALS, DOSE LEVEL 6AUC, TOTAL DOSE 595-850 MG, LAST DOSE PRIOR TO SAE:04 JUN 2010
     Route: 042
     Dates: start: 20100218
  5. DOCETAXEL [Suspect]
     Dosage: FORM:VIALS, TOTAL DOSE 135 MG, LAST DOSE PRIOR TO SAE: 04 JUNE 2010
     Route: 042
     Dates: start: 20100218
  6. CELEXA [Suspect]
     Indication: PRODUCT USED FOR UNKNOWN INDICATION
     Route: 065
     Dates: start: 20100325, end: 20100512
  7. CELEXA [Suspect]
     Route: 065
     Dates: start: 20100513, end: 20100629
  8. CELEXA [Suspect]
     Route: 065
     Dates: start: 20100630, end: 20100707
  9. ATIVAN [Concomitant]
     Dates: start: 20100204
  10. PRILOSEC [Concomitant]
     Dates: start: 20100308
  11. ZANTAC [Concomitant]
     Dates: start: 20100223, end: 20100308

REACTIONS (2)
  - COUGH [None]
  - DYSPHONIA [None]
